FAERS Safety Report 25090897 (Version 1)
Quarter: 2025Q1

REPORT INFORMATION
  Report Type: Spontaneous
  Country: US (occurrence: US)
  Receive Date: 20250318
  Receipt Date: 20250318
  Transmission Date: 20250408
  Serious: No
  Sender: ABBVIE
  Company Number: US-ABBVIE-6178658

PATIENT
  Sex: Male

DRUGS (1)
  1. LINACLOTIDE [Suspect]
     Active Substance: LINACLOTIDE
     Indication: Dyspepsia
     Route: 048

REACTIONS (3)
  - Off label use [Unknown]
  - Diarrhoea [Unknown]
  - Dizziness [Unknown]
